FAERS Safety Report 18049652 (Version 1)
Quarter: 2020Q3

REPORT INFORMATION
  Report Type: Spontaneous
  Country: AR (occurrence: AR)
  Receive Date: 20200721
  Receipt Date: 20200721
  Transmission Date: 20201103
  Serious: Yes (Other)
  Sender: FDA-Public Use
  Company Number: AR-PFIZER INC-2020275072

PATIENT
  Age: 58 Year
  Sex: Female

DRUGS (1)
  1. IBRANCE [Suspect]
     Active Substance: PALBOCICLIB
     Indication: BREAST CANCER METASTATIC
     Dosage: 125 MG, DAILY, 3X1 SCHEME
     Dates: start: 20190905

REACTIONS (10)
  - Pain [Unknown]
  - Decreased immune responsiveness [Unknown]
  - Diarrhoea [Unknown]
  - Headache [Unknown]
  - Anosmia [Unknown]
  - Malaise [Unknown]
  - Pulmonary pain [Unknown]
  - Oropharyngeal pain [Unknown]
  - Myalgia [Unknown]
  - Tumour haemorrhage [Unknown]
